FAERS Safety Report 11875381 (Version 3)
Quarter: 2019Q3

REPORT INFORMATION
  Report Type: Spontaneous
  Country: US (occurrence: US)
  Receive Date: 20151229
  Receipt Date: 20190911
  Transmission Date: 20191004
  Serious: No
  Sender: FDA-Public Use
  Company Number: US-PFIZER INC-2015427152

PATIENT
  Age: 62 Year
  Sex: Female

DRUGS (3)
  1. PRISTIQ EXTENDED-RELEASE [Suspect]
     Active Substance: DESVENLAFAXINE SUCCINATE
     Indication: BIPOLAR I DISORDER
     Dosage: 100 MG, 1X/DAY
     Route: 048
     Dates: start: 2012
  2. PRISTIQ EXTENDED-RELEASE [Suspect]
     Active Substance: DESVENLAFAXINE SUCCINATE
     Dosage: 50 MG, 1X/DAY
     Route: 048
  3. ATIVAN [Concomitant]
     Active Substance: LORAZEPAM
     Dosage: 1 MG, UNK

REACTIONS (5)
  - Feeling abnormal [Recovered/Resolved]
  - Hot flush [Unknown]
  - Drug withdrawal syndrome [Unknown]
  - Crying [Unknown]
  - Hyperhidrosis [Unknown]
